FAERS Safety Report 5778105-2 (Version None)
Quarter: 2008Q2

REPORT INFORMATION
  Report Type: 
  Country: None (occurrence: None)
  Receive Date: 20080618
  Receipt Date: 20080618
  Transmission Date: 20081010
  Serious: No
  Sender: FDA-Public Use
  Company Number: None

PATIENT
  Age: 36 Year
  Sex: Female
  Weight: 106.14 kg

DRUGS (1)
  1. AMOXICILLIN [Suspect]
     Indication: SINUSITIS
     Dosage: 500 MG TID PO
     Route: 048
     Dates: start: 20080402, end: 20080412

REACTIONS (3)
  - PRURITUS [None]
  - URTICARIA [None]
  - VULVOVAGINAL MYCOTIC INFECTION [None]
